FAERS Safety Report 23724205 (Version 3)
Quarter: 2024Q2

REPORT INFORMATION
  Report Type: Spontaneous
  Country: FR (occurrence: FR)
  Receive Date: 20240409
  Receipt Date: 20240618
  Transmission Date: 20240716
  Serious: Yes (Hospitalization)
  Sender: FDA-Public Use
  Company Number: FR-ORGANON-O2404FRA000027

PATIENT
  Sex: Male
  Weight: 88 kg

DRUGS (6)
  1. FOSAVANCE [Suspect]
     Active Substance: ALENDRONATE SODIUM\CHOLECALCIFEROL
     Dosage: UNK
     Route: 048
  2. FOSAVANCE [Suspect]
     Active Substance: ALENDRONATE SODIUM\CHOLECALCIFEROL
     Dosage: 1 TABLET PER DAY (70/5600)
     Route: 048
     Dates: start: 20240322
  3. FOSAVANCE [Suspect]
     Active Substance: ALENDRONATE SODIUM\CHOLECALCIFEROL
     Dosage: 1 TABLET PER DAY (70/5600)
     Route: 048
     Dates: start: 20240323
  4. FOSAVANCE [Suspect]
     Active Substance: ALENDRONATE SODIUM\CHOLECALCIFEROL
     Dosage: 1 TABLET PER DAY (70/5600)
     Route: 048
     Dates: start: 20240324
  5. FOSAVANCE [Suspect]
     Active Substance: ALENDRONATE SODIUM\CHOLECALCIFEROL
     Dosage: 1 TABLET PER DAY (70/5600)
     Route: 048
     Dates: start: 20240325
  6. FOSAVANCE [Suspect]
     Active Substance: ALENDRONATE SODIUM\CHOLECALCIFEROL
     Dosage: ONCE PER WEEK (70MG/5600UI)
     Route: 048

REACTIONS (5)
  - Cardiac disorder [Unknown]
  - Transcription medication error [Unknown]
  - Accidental overdose [Unknown]
  - Product prescribing error [Unknown]
  - Product use issue [Unknown]
